FAERS Safety Report 24007952 (Version 1)
Quarter: 2024Q2

REPORT INFORMATION
  Report Type: Spontaneous
  Country: US (occurrence: US)
  Receive Date: 20240625
  Receipt Date: 20240625
  Transmission Date: 20240715
  Serious: Yes (Other)
  Sender: FDA-Public Use
  Company Number: US-MLMSERVICE-20240429-PI041747-00117-1

PATIENT
  Age: 49 Year
  Sex: Male

DRUGS (31)
  1. BORTEZOMIB [Suspect]
     Active Substance: BORTEZOMIB
     Indication: Light chain disease
     Dosage: UNK, C1W1
     Route: 065
     Dates: start: 20230927, end: 2023
  2. BORTEZOMIB [Suspect]
     Active Substance: BORTEZOMIB
     Dosage: UNK, C2W1
     Route: 065
     Dates: start: 20231018, end: 2023
  3. BORTEZOMIB [Suspect]
     Active Substance: BORTEZOMIB
     Dosage: UNK,C3W1
     Route: 065
     Dates: start: 20231107, end: 2023
  4. BORTEZOMIB [Suspect]
     Active Substance: BORTEZOMIB
     Dosage: UNK, C4W1
     Route: 065
     Dates: start: 20231121, end: 2023
  5. BORTEZOMIB [Suspect]
     Active Substance: BORTEZOMIB
     Dosage: UNK, C5W1
     Route: 065
     Dates: start: 20231212, end: 2023
  6. BORTEZOMIB [Suspect]
     Active Substance: BORTEZOMIB
     Dosage: UNK, C6W1
     Route: 065
     Dates: start: 20240103, end: 2024
  7. BORTEZOMIB [Suspect]
     Active Substance: BORTEZOMIB
     Dosage: UNK,C7W1
     Route: 065
     Dates: start: 20240124, end: 2024
  8. BORTEZOMIB [Suspect]
     Active Substance: BORTEZOMIB
     Dosage: UNK, C8W1
     Route: 065
     Dates: start: 20240214, end: 2024
  9. BORTEZOMIB [Suspect]
     Active Substance: BORTEZOMIB
     Dosage: UNK, C1W2
     Route: 065
     Dates: start: 20231003, end: 2023
  10. BORTEZOMIB [Suspect]
     Active Substance: BORTEZOMIB
     Dosage: UNK,C2W2
     Route: 065
     Dates: start: 20231024, end: 2023
  11. BORTEZOMIB [Suspect]
     Active Substance: BORTEZOMIB
     Dosage: UNK,C4W2
     Route: 065
     Dates: start: 20231128, end: 2023
  12. BORTEZOMIB [Suspect]
     Active Substance: BORTEZOMIB
     Dosage: UNK, C6W2
     Route: 065
     Dates: start: 20240110, end: 2024
  13. BORTEZOMIB [Suspect]
     Active Substance: BORTEZOMIB
     Dosage: UNK, C7W2
     Route: 065
     Dates: start: 20240131, end: 2024
  14. CYCLOPHOSPHAMIDE [Suspect]
     Active Substance: CYCLOPHOSPHAMIDE
     Indication: Light chain disease
     Dosage: UNK,C1W1
     Route: 065
     Dates: start: 20230927, end: 2023
  15. CYCLOPHOSPHAMIDE [Suspect]
     Active Substance: CYCLOPHOSPHAMIDE
     Dosage: UNK, C1W2
     Route: 065
     Dates: start: 20231003, end: 2023
  16. CYCLOPHOSPHAMIDE [Suspect]
     Active Substance: CYCLOPHOSPHAMIDE
     Dosage: UNK, C3W1
     Route: 065
     Dates: start: 20231107, end: 2023
  17. CYCLOPHOSPHAMIDE [Suspect]
     Active Substance: CYCLOPHOSPHAMIDE
     Dosage: UNK, C4W1
     Route: 065
     Dates: start: 20231121, end: 2023
  18. CYCLOPHOSPHAMIDE [Suspect]
     Active Substance: CYCLOPHOSPHAMIDE
     Dosage: UNK, C4W2
     Route: 065
     Dates: start: 20231128, end: 2023
  19. CYCLOPHOSPHAMIDE [Suspect]
     Active Substance: CYCLOPHOSPHAMIDE
     Dosage: UNK, C5W1
     Route: 065
     Dates: start: 20231212, end: 2023
  20. CYCLOPHOSPHAMIDE [Suspect]
     Active Substance: CYCLOPHOSPHAMIDE
     Dosage: UNK, C6W1
     Route: 065
     Dates: start: 20240103, end: 2024
  21. CYCLOPHOSPHAMIDE [Suspect]
     Active Substance: CYCLOPHOSPHAMIDE
     Dosage: UNK, C6W2
     Route: 065
     Dates: start: 20240110, end: 2024
  22. CYCLOPHOSPHAMIDE [Suspect]
     Active Substance: CYCLOPHOSPHAMIDE
     Dosage: UNK, C7W1
     Route: 065
     Dates: start: 20240124, end: 2024
  23. CYCLOPHOSPHAMIDE [Suspect]
     Active Substance: CYCLOPHOSPHAMIDE
     Dosage: UNK, C8W1
     Route: 065
     Dates: start: 20240214, end: 2024
  24. DEXAMETHASONE [Suspect]
     Active Substance: DEXAMETHASONE
     Indication: Light chain disease
     Dosage: UNK, C1W1
     Route: 065
     Dates: start: 20230927, end: 2023
  25. DEXAMETHASONE [Suspect]
     Active Substance: DEXAMETHASONE
     Dosage: UNK,C3W1
     Route: 065
     Dates: start: 20231107, end: 2023
  26. DEXAMETHASONE [Suspect]
     Active Substance: DEXAMETHASONE
     Dosage: UNK,C4W1
     Route: 065
     Dates: start: 20231121, end: 2023
  27. DEXAMETHASONE [Suspect]
     Active Substance: DEXAMETHASONE
     Dosage: UNK, C5W1
     Route: 065
     Dates: start: 20231212, end: 2023
  28. DEXAMETHASONE [Suspect]
     Active Substance: DEXAMETHASONE
     Dosage: UNK, C6W1
     Route: 065
     Dates: start: 20240103, end: 2024
  29. DEXAMETHASONE [Suspect]
     Active Substance: DEXAMETHASONE
     Dosage: UNK, C8W1
     Route: 065
     Dates: start: 20240214, end: 2024
  30. DEXAMETHASONE [Suspect]
     Active Substance: DEXAMETHASONE
     Dosage: UNK, C1W2
     Route: 065
     Dates: start: 20231003, end: 2023
  31. DEXAMETHASONE [Suspect]
     Active Substance: DEXAMETHASONE
     Dosage: UNK, C4W2
     Route: 065
     Dates: start: 20231128, end: 2023

REACTIONS (1)
  - Heart failure with reduced ejection fraction [Unknown]
